FAERS Safety Report 17653941 (Version 4)
Quarter: 2020Q2

REPORT INFORMATION
  Report Type: Report from Study
  Country: JP (occurrence: JP)
  Receive Date: 20200410
  Receipt Date: 20200627
  Transmission Date: 20200713
  Serious: Yes (Death, Life-Threatening, Hospitalization, Other)
  Sender: FDA-Public Use
  Company Number: JP-ROCHE-2422020

PATIENT
  Age: 71 Year
  Sex: Male
  Weight: 56 kg

DRUGS (7)
  1. COCARL [Suspect]
     Active Substance: ACETAMINOPHEN
     Indication: BACK PAIN
     Dosage: DOSE INTERVAL UNCERTAINTY
     Route: 048
     Dates: start: 20190603, end: 20190710
  2. NARURAPID [Suspect]
     Active Substance: HYDROMORPHONE HYDROCHLORIDE
     Indication: BACK PAIN
     Dosage: DOSE INTERVAL UNCERTAINTY
     Route: 048
     Dates: start: 20190603, end: 20190710
  3. MAGNESIUM OXIDE. [Suspect]
     Active Substance: MAGNESIUM OXIDE
     Indication: CONSTIPATION
     Dosage: DOSE INTERVAL UNCERTAINTY
     Route: 048
     Dates: start: 20190625, end: 20190710
  4. SUMILU STICK [Suspect]
     Active Substance: FELBINAC
     Indication: ARTHRALGIA
     Dosage: PROPER QUANTITY
     Route: 003
     Dates: start: 20190529, end: 20190710
  5. FAMOTIDINE. [Suspect]
     Active Substance: FAMOTIDINE
     Indication: PROPHYLAXIS
     Dosage: DOSE INTERVAL UNCERTAINTY
     Route: 048
     Dates: start: 20181012, end: 20190710
  6. CELECOX [Suspect]
     Active Substance: CELECOXIB
     Indication: ARTHRALGIA
     Dosage: DOSE INTERVAL UNCERTAINTY
     Route: 048
     Dates: start: 20181012, end: 20190710
  7. ATEZOLIZUMAB. [Suspect]
     Active Substance: ATEZOLIZUMAB
     Indication: LUNG ADENOCARCINOMA
     Route: 041
     Dates: start: 20190626, end: 20190711

REACTIONS (5)
  - Venous thrombosis limb [Not Recovered/Not Resolved]
  - Meningitis [Not Recovered/Not Resolved]
  - Autoimmune hepatitis [Not Recovered/Not Resolved]
  - Encephalitis [Fatal]
  - Embolic cerebral infarction [Not Recovered/Not Resolved]

NARRATIVE: CASE EVENT DATE: 20190705
